FAERS Safety Report 8987435 (Version 1)
Quarter: 2012Q4

REPORT INFORMATION
  Report Type: 
  Country: FR (occurrence: FR)
  Receive Date: 20121227
  Receipt Date: 20121227
  Transmission Date: 20130627
  Serious: Yes (Death)
  Sender: FDA-Public Use
  Company Number: FR-FRI-1000041208

PATIENT
  Age: 87 Year
  Sex: Male

DRUGS (13)
  1. MILNACIPRAN [Suspect]
     Indication: DEPRESSION
     Dosage: 100 mg
     Route: 048
     Dates: end: 20121205
  2. PRADAXA [Suspect]
     Indication: PULMONARY EMBOLISM
     Dosage: 220 mg
     Route: 048
     Dates: start: 20120807, end: 20121205
  3. PLAVIX [Suspect]
     Dosage: 75 mg
     Route: 048
     Dates: end: 20121205
  4. CORDARONE [Suspect]
     Dosage: 1 DF
     Route: 048
     Dates: start: 20120807, end: 20121205
  5. MOPRAL [Concomitant]
  6. STILNOX [Concomitant]
     Dosage: 10 mg
  7. FINASTERIDE [Concomitant]
  8. OMEXEL [Concomitant]
     Dosage: 0.4 mg
  9. LAMALINE [Concomitant]
  10. NOVOMIX [Concomitant]
  11. MACROGOL [Concomitant]
  12. ATARAX [Concomitant]
  13. BISOCE [Concomitant]

REACTIONS (3)
  - Muscle haemorrhage [Fatal]
  - Shock haemorrhagic [Fatal]
  - Cardiogenic shock [Fatal]
